FAERS Safety Report 19682897 (Version 1)
Quarter: 2021Q3

REPORT INFORMATION
  Report Type: Report from Study
  Country: None (occurrence: US)
  Receive Date: 20210811
  Receipt Date: 20210811
  Transmission Date: 20211014
  Serious: Yes (Other)
  Sender: FDA-Public Use
  Company Number: US-ABBVIE-21K-163-4031501-00

PATIENT
  Sex: Female

DRUGS (1)
  1. VENCLEXTA [Suspect]
     Active Substance: VENETOCLAX
     Indication: ACUTE MYELOID LEUKAEMIA
     Route: 048
     Dates: start: 20210721

REACTIONS (5)
  - Constipation [Unknown]
  - Laboratory test abnormal [Unknown]
  - Diarrhoea [Not Recovered/Not Resolved]
  - Haemorrhoids [Unknown]
  - Transfusion [Unknown]

NARRATIVE: CASE EVENT DATE: 2021
